FAERS Safety Report 7543345-9 (Version None)
Quarter: 2011Q2

REPORT INFORMATION
  Report Type: 
  Country: None (occurrence: None)
  Receive Date: 20110613
  Receipt Date: 20110601
  Transmission Date: 20111010
  Serious: Yes (Other)
  Sender: FDA-Public Use
  Company Number: GB-SHIRE-ALL1-2011-01697

PATIENT
  Age: 59 Year
  Sex: Female

DRUGS (2)
  1. HYDROXYUREA [Concomitant]
     Indication: PRODUCT USED FOR UNKNOWN INDICATION
     Dosage: UNK UNK, UNKNOWN
     Route: 065
  2. ANAGRELIDE HYDROCHLORIDE [Suspect]
     Indication: ESSENTIAL THROMBOCYTHAEMIA
     Dosage: UNK UNK, UNKNOWN
     Route: 048
     Dates: start: 20110101

REACTIONS (3)
  - NEUTROPHIL COUNT INCREASED [None]
  - HAEMATURIA [None]
  - BLADDER CANCER [None]
